FAERS Safety Report 6638217-8 (Version None)
Quarter: 2010Q1

REPORT INFORMATION
  Report Type: 
  Country: None (occurrence: None)
  Receive Date: 20100317
  Receipt Date: 20100312
  Transmission Date: 20100710
  Serious: Yes (Hospitalization)
  Sender: FDA-Public Use
  Company Number: US-ROCHE-670359

PATIENT
  Age: 60 Year
  Sex: Male

DRUGS (5)
  1. NAIXAN [Suspect]
     Indication: DRUG USE FOR UNKNOWN INDICATION
     Route: 065
  2. LISINOPRIL [Interacting]
     Indication: HYPERTENSION
     Route: 065
  3. AMLODIPINE [Concomitant]
     Indication: HYPERTENSION
  4. CLOPIDOGREL [Concomitant]
  5. RANITIDINE [Concomitant]

REACTIONS (5)
  - ELECTROCARDIOGRAM QRS COMPLEX PROLONGED [None]
  - ELECTROCARDIOGRAM T WAVE ABNORMAL [None]
  - HYPERKALAEMIA [None]
  - PARALYSIS [None]
  - RENAL FAILURE CHRONIC [None]
